FAERS Safety Report 10584224 (Version 1)
Quarter: 2014Q4

REPORT INFORMATION
  Report Type: Spontaneous
  Country: US (occurrence: None)
  Receive Date: 20141113
  Receipt Date: 20141113
  Transmission Date: 20150529
  Serious: Yes (Disabling, Other)
  Sender: FDA-Public Use
  Company Number: None

PATIENT
  Age: 55 Year
  Sex: Female
  Weight: 95.71 kg

DRUGS (1)
  1. PAROXETINE HCL [Suspect]
     Active Substance: PAROXETINE HYDROCHLORIDE
     Indication: HOT FLUSH
     Dosage: 10MG 1 PILL, AT NIGHT, BY MOUTH
     Route: 048
     Dates: start: 20140929, end: 20141028

REACTIONS (3)
  - Diarrhoea [None]
  - Abdominal pain upper [None]
  - Colitis microscopic [None]

NARRATIVE: CASE EVENT DATE: 20141008
